FAERS Safety Report 5335788-9 (Version None)
Quarter: 2007Q1

REPORT INFORMATION
  Report Type: 
  Country: None (occurrence: None)
  Receive Date: 20070322
  Receipt Date: 20061228
  Transmission Date: 20070707
  Serious: Yes (Hospitalization, Other)
  Sender: FDA-Public Use
  Company Number: US-CVT-062483

PATIENT
  Age: 77 Year
  Sex: Male
  Weight: 80.7 kg

DRUGS (11)
  1. RANEXA [Suspect]
     Indication: ANGINA PECTORIS
     Dosage: SEE IMAGE
     Route: 048
     Dates: start: 20060921, end: 20061124
  2. RANEXA [Suspect]
     Indication: ANGINA PECTORIS
     Dosage: SEE IMAGE
     Route: 048
     Dates: start: 20070207
  3. IMDUR [Concomitant]
  4. NITROGLYCERIN [Concomitant]
  5. COUMADIN [Concomitant]
  6. RELAFEN [Concomitant]
  7. PRILOSEC [Concomitant]
  8. LISINOPRIL/00894001/ (LISINOPRIL) [Concomitant]
  9. LASIX [Concomitant]
  10. GLUCOTROL XL [Concomitant]
  11. MVI (VITAMINS NOS) [Concomitant]

REACTIONS (2)
  - ACUTE MYOCARDIAL INFARCTION [None]
  - CORONARY BYPASS THROMBOSIS [None]
